FAERS Safety Report 22920726 (Version 4)
Quarter: 2024Q1

REPORT INFORMATION
  Report Type: Spontaneous
  Country: JP (occurrence: JP)
  Receive Date: 20230908
  Receipt Date: 20240105
  Transmission Date: 20240410
  Serious: Yes (Death, Hospitalization, Other)
  Sender: FDA-Public Use
  Company Number: JP-ALXN-A202309371AA

PATIENT
  Age: 79 Year
  Sex: Female
  Weight: 34.9 kg

DRUGS (5)
  1. ULTOMIRIS [Suspect]
     Active Substance: RAVULIZUMAB-CWVZ
     Indication: Paroxysmal nocturnal haemoglobinuria
     Dosage: 2400 MG, SINGLE
     Route: 042
     Dates: start: 20191120, end: 20191120
  2. ULTOMIRIS [Suspect]
     Active Substance: RAVULIZUMAB-CWVZ
     Dosage: 3000 MG, Q56
     Route: 042
     Dates: start: 20191204, end: 20220323
  3. ULTOMIRIS [Suspect]
     Active Substance: RAVULIZUMAB-CWVZ
     Indication: Paroxysmal nocturnal haemoglobinuria
     Dosage: 3000 MG, UNK
     Route: 042
     Dates: start: 20220518, end: 20230615
  4. PRIMOBOLAN                         /00044803/ [Concomitant]
     Indication: Osteoporosis prophylaxis
     Dosage: 10 MG, QD
     Route: 048
  5. ALFACALCIDOL [Concomitant]
     Active Substance: ALFACALCIDOL
     Indication: Product used for unknown indication
     Dosage: 1 ?G, QD
     Route: 048

REACTIONS (6)
  - Colitis ulcerative [Fatal]
  - General physical health deterioration [Fatal]
  - Anaemia [Unknown]
  - Enteritis infectious [Unknown]
  - Chondrocalcinosis [Unknown]
  - Weight decreased [Not Recovered/Not Resolved]

NARRATIVE: CASE EVENT DATE: 20220601
